FAERS Safety Report 9933281 (Version 2)
Quarter: 2014Q1

REPORT INFORMATION
  Report Type: Report from Study
  Country: US (occurrence: US)
  Receive Date: 20140228
  Receipt Date: 20140228
  Transmission Date: 20141002
  Serious: No
  Sender: FDA-Public Use
  Company Number: US-MYLANLABS-2013S1003196

PATIENT
  Age: 15 Year
  Sex: Male
  Weight: 56.7 kg

DRUGS (3)
  1. CLARAVIS [Suspect]
     Indication: ACNE CYSTIC
     Dates: start: 20121129
  2. AMNESTEEM CAPSULES [Suspect]
     Indication: ACNE CYSTIC
     Dates: end: 20130206
  3. CLARAVIS [Suspect]
     Indication: ACNE CYSTIC
     Dates: start: 20130104, end: 20130206

REACTIONS (1)
  - Arthralgia [Recovered/Resolved]
